FAERS Safety Report 18608972 (Version 5)
Quarter: 2022Q3

REPORT INFORMATION
  Report Type: Other
  Country: DE (occurrence: DE)
  Receive Date: 20201214
  Receipt Date: 20220714
  Transmission Date: 20221026
  Serious: Yes (Death, Other)
  Sender: FDA-Public Use
  Company Number: DE-002147023-PHHY2019DE208200

PATIENT
  Age: 48 Year
  Sex: Female
  Weight: 76 kg

DRUGS (4)
  1. CAPECITABINE [Suspect]
     Active Substance: CAPECITABINE
     Indication: Breast cancer metastatic
     Dosage: 500 MG (4 IN THE MORNING AND 4 IN THE EVENING)?MOST RECENT DOSE PRIOR TO AE 24/MAY/2020
     Route: 048
     Dates: start: 20191112
  2. KISQALI [Suspect]
     Active Substance: RIBOCICLIB
     Indication: Breast cancer metastatic
     Dosage: MOST RECENT DOSE PRIOR TO AE 11/NOV/2019
     Route: 048
     Dates: start: 20190627
  3. KISQALI [Suspect]
     Active Substance: RIBOCICLIB
     Route: 048
     Dates: start: 20190801, end: 20191111
  4. FULVESTRANT [Suspect]
     Active Substance: FULVESTRANT
     Indication: Breast cancer metastatic
     Dosage: MOST RECENT DOSE PRIOR TO AE 24/OCT/2019
     Route: 042
     Dates: start: 20190627

REACTIONS (9)
  - General physical health deterioration [Fatal]
  - Leukopenia [Not Recovered/Not Resolved]
  - Pain in extremity [Unknown]
  - Vomiting [Fatal]
  - Nausea [Unknown]
  - Leukopenia [Recovered/Resolved]
  - Hyperhidrosis [Recovered/Resolved]
  - Breast cancer metastatic [Fatal]
  - Malignant neoplasm progression [Fatal]

NARRATIVE: CASE EVENT DATE: 20190725
